FAERS Safety Report 5012957-9 (Version None)
Quarter: 2006Q2

REPORT INFORMATION
  Report Type: 
  Country: None (occurrence: None)
  Receive Date: 20060530
  Receipt Date: 20060424
  Transmission Date: 20061013
  Serious: Yes (Other)
  Sender: FDA-Public Use
  Company Number: 2006GB00692

PATIENT
  Age: 70 Year
  Sex: Male

DRUGS (5)
  1. LISINOPRIL [Suspect]
     Route: 048
     Dates: start: 20050615
  2. AMITRIPTYLINE HCL [Concomitant]
     Route: 048
     Dates: start: 20050525
  3. FELODIPINE [Concomitant]
     Route: 048
  4. SIMVASTATIN [Concomitant]
     Route: 048
     Dates: start: 20050615
  5. BENDROFLUAZIDE [Concomitant]
     Route: 048

REACTIONS (1)
  - ABNORMAL DREAMS [None]
